FAERS Safety Report 5209500-8 (Version None)
Quarter: 2007Q1

REPORT INFORMATION
  Report Type: 
  Country: None (occurrence: None)
  Receive Date: 20070111
  Receipt Date: 20070105
  Transmission Date: 20070707
  Serious: Yes (Death)
  Sender: FDA-Public Use
  Company Number: 2007-00041

PATIENT
  Age: 41 Year
  Sex: Female

DRUGS (1)
  1. PREDNISONE TAB [Suspect]
     Indication: FACIAL PALSY
     Dosage: UNKNOWN DOSE FOR ^SHORT COURSE^
     Dates: start: 20020101, end: 20020101

REACTIONS (4)
  - CONDITION AGGRAVATED [None]
  - HEPATIC STEATOSIS [None]
  - MULTI-ORGAN FAILURE [None]
  - SUBACUTE HEPATIC FAILURE [None]
